FAERS Safety Report 5039356-8 (Version None)
Quarter: 2006Q2

REPORT INFORMATION
  Report Type: 
  Country: None (occurrence: None)
  Receive Date: 20060623
  Receipt Date: 20060612
  Transmission Date: 20061013
  Serious: Yes (Hospitalization)
  Sender: FDA-Public Use
  Company Number: 2006074858

PATIENT
  Age: 46 Year
  Sex: Female
  Weight: 133.8111 kg

DRUGS (1)
  1. BEXTRA [Suspect]
     Dosage: (10 MG, )

REACTIONS (1)
  - CEREBROVASCULAR ACCIDENT [None]
